FAERS Safety Report 15554004 (Version 1)
Quarter: 2018Q4

REPORT INFORMATION
  Report Type: Spontaneous
  Country: US (occurrence: US)
  Receive Date: 20181026
  Receipt Date: 20181026
  Transmission Date: 20190205
  Serious: No
  Sender: FDA-Public Use
  Company Number: US-BAYER-2018-198577

PATIENT
  Sex: Female

DRUGS (1)
  1. MIRALAX [Suspect]
     Active Substance: POLYETHYLENE GLYCOL 3350
     Indication: CONSTIPATION PROPHYLAXIS
     Dosage: LITTLE LESS THAN A TEASPOON WITH COLD WA DOSE
     Route: 048
     Dates: end: 20181024

REACTIONS (3)
  - Underdose [None]
  - Off label use [Unknown]
  - Product use in unapproved indication [Unknown]
